FAERS Safety Report 7544166-3 (Version None)
Quarter: 2011Q2

REPORT INFORMATION
  Report Type: 
  Country: None (occurrence: None)
  Receive Date: 20110613
  Receipt Date: 20070208
  Transmission Date: 20111010
  Serious: Yes (Hospitalization)
  Sender: FDA-Public Use
  Company Number: PHFR2006GB03500

PATIENT
  Sex: Female

DRUGS (5)
  1. CLOZAPINE [Suspect]
     Indication: SCHIZOPHRENIA
     Dosage: 300 MG, DAILY
     Route: 048
     Dates: start: 20061003
  2. DICLOFENAC SODIUM [Concomitant]
     Indication: ARTHRITIS
     Dosage: 150 MG/DAY
     Route: 048
  3. VITAMIN B COMPLEX CAP [Concomitant]
     Indication: ALOPECIA
     Dosage: 150 MG/DAY
     Route: 048
     Dates: start: 20061201
  4. CLOZAPINE [Suspect]
     Dosage: 250 MG / DAY
     Route: 048
     Dates: start: 20061001
  5. DEPAKOTE [Concomitant]
     Indication: AFFECTIVE DISORDER
     Dosage: 1500 MG/DAY
     Route: 048

REACTIONS (4)
  - URINARY TRACT INFECTION [None]
  - DIARRHOEA [None]
  - GASTROENTERITIS [None]
  - PSORIATIC ARTHROPATHY [None]
